FAERS Safety Report 7137579-5 (Version None)
Quarter: 2010Q4

REPORT INFORMATION
  Report Type: 
  Country: None (occurrence: None)
  Receive Date: 20101103
  Receipt Date: 20100513
  Transmission Date: 20110411
  Serious: Yes (Hospitalization, Other)
  Sender: FDA-Public Use
  Company Number: 2010S1000291

PATIENT
  Age: 26 Year
  Sex: Male
  Weight: 68 kg

DRUGS (3)
  1. CUBICIN [Suspect]
     Indication: BACTERAEMIA
     Dosage: 7.35 MG/KG Q24H;IV
     Route: 042
     Dates: start: 20090803, end: 20090813
  2. LINEZOLID [Concomitant]
  3. XIGRIS [Concomitant]

REACTIONS (1)
  - EOSINOPHILIC PNEUMONIA [None]
